FAERS Safety Report 5052512-8 (Version None)
Quarter: 2006Q3

REPORT INFORMATION
  Report Type: 
  Country: None (occurrence: None)
  Receive Date: 20060717
  Receipt Date: 20060703
  Transmission Date: 20061208
  Serious: Yes (Hospitalization, Other)
  Sender: FDA-Public Use
  Company Number: PHBS2006ES09908

PATIENT
  Age: 52 Year
  Sex: Male

DRUGS (6)
  1. CYCLOSPORINE [Suspect]
     Indication: RENAL TRANSPLANT
     Dosage: 4 MG/KG, BID
     Route: 065
     Dates: start: 19930101, end: 20011101
  2. TACROLIMUS [Suspect]
     Indication: RENAL TRANSPLANT
  3. ATORVASTATIN CALCIUM [Concomitant]
     Dosage: 20 MG/D
  4. TELMISARTAN [Concomitant]
     Dosage: 80 MG/D
  5. PREDNISONE (NGX) [Suspect]
     Indication: RENAL TRANSPLANT
     Dosage: 0.5 MG/D
     Route: 065
  6. FLUVASTATIN [Concomitant]
     Indication: HYPERCHOLESTEROLAEMIA
     Dosage: 20 MG/D
     Route: 065

REACTIONS (11)
  - ATRIAL FIBRILLATION [None]
  - CARDIOVERSION [None]
  - CHOLECYSTECTOMY [None]
  - CHOLECYSTITIS [None]
  - CHRONIC ALLOGRAFT NEPHROPATHY [None]
  - GINGIVAL HYPERPLASIA [None]
  - HYPERCHOLESTEROLAEMIA [None]
  - INTRACARDIAC THROMBUS [None]
  - MYOCARDIAL INFARCTION [None]
  - VENTRICULAR DYSKINESIA [None]
  - VENTRICULAR FIBRILLATION [None]
